FAERS Safety Report 25103726 (Version 1)
Quarter: 2025Q1

REPORT INFORMATION
  Report Type: Spontaneous
  Country: US (occurrence: US)
  Receive Date: 20250321
  Receipt Date: 20250321
  Transmission Date: 20250408
  Serious: No
  Sender: LEO PHARM
  Company Number: US-LEO Pharma-378536

PATIENT
  Age: 84 Year
  Sex: Male

DRUGS (1)
  1. ADBRY [Suspect]
     Active Substance: TRALOKINUMAB-LDRM
     Indication: Dermatitis atopic
     Route: 058
     Dates: start: 20250225

REACTIONS (3)
  - Diarrhoea [Recovering/Resolving]
  - Swelling [Recovering/Resolving]
  - Dizziness [Recovering/Resolving]
